FAERS Safety Report 9342496 (Version 3)
Quarter: 2014Q3

REPORT INFORMATION
  Report Type: Spontaneous
  Country: US (occurrence: None)
  Receive Date: 20130528
  Receipt Date: 20140916
  Transmission Date: 20150326
  Serious: Yes (Hospitalization, Other)
  Sender: FDA-Public Use
  Company Number: 2012-002863

PATIENT
  Age: 79 Year
  Sex: Female

DRUGS (36)
  1. ACTONEL [Suspect]
     Active Substance: RISEDRONATE SODIUM
     Indication: OSTEOPOROSIS
     Route: 048
     Dates: start: 200903, end: 201006
  2. FOSAMAX [Suspect]
     Active Substance: ALENDRONATE SODIUM
     Indication: OSTEOPENIA
     Route: 048
     Dates: start: 200103, end: 2003
  3. NEURONTIN [Concomitant]
     Active Substance: GABAPENTIN
  4. TRAVATAN [Concomitant]
     Active Substance: TRAVOPROST
  5. GLUCOSAMINE CHONDROITIN [Concomitant]
  6. ACTONEL [Suspect]
     Active Substance: RISEDRONATE SODIUM
     Indication: OSTEOPOROSIS PROPHYLAXIS
     Route: 048
     Dates: start: 2003, end: 200903
  7. ACTONEL [Suspect]
     Active Substance: RISEDRONATE SODIUM
     Indication: OSTEOPOROSIS PROPHYLAXIS
     Route: 048
     Dates: start: 200903, end: 201006
  8. ALLEGRA [Concomitant]
     Active Substance: FEXOFENADINE HYDROCHLORIDE
  9. LEVAQUIN [Concomitant]
     Active Substance: LEVOFLOXACIN
  10. FOSAMAX [Suspect]
     Active Substance: ALENDRONATE SODIUM
     Indication: OSTEOPOROSIS
     Route: 048
     Dates: start: 200103, end: 2003
  11. RECLAST [Suspect]
     Active Substance: ZOLEDRONIC ACID
     Indication: OSTEOPOROSIS
     Dosage: INJECTIONS, OTHER
     Dates: start: 201103
  12. BEXTRA [Concomitant]
     Active Substance: VALDECOXIB
  13. VITAMIN C [Concomitant]
     Active Substance: ASCORBIC ACID
  14. ACTONEL [Suspect]
     Active Substance: RISEDRONATE SODIUM
     Indication: OSTEOPENIA
     Route: 048
     Dates: start: 2003, end: 200903
  15. ZOCOR [Concomitant]
     Active Substance: SIMVASTATIN
  16. ENDAL HD [Concomitant]
  17. GENTAMICIN [Concomitant]
     Active Substance: GENTAMICIN
  18. ACTONEL [Suspect]
     Active Substance: RISEDRONATE SODIUM
     Indication: OSTEOPOROSIS
     Route: 048
     Dates: start: 2003, end: 200903
  19. ACTONEL [Suspect]
     Active Substance: RISEDRONATE SODIUM
     Indication: OSTEOPENIA
     Route: 048
     Dates: start: 200903, end: 201006
  20. FOSAMAX [Suspect]
     Active Substance: ALENDRONATE SODIUM
     Indication: PROPHYLAXIS
     Route: 048
     Dates: start: 200103, end: 2003
  21. ATACAND [Concomitant]
     Active Substance: CANDESARTAN CILEXETIL
  22. MOTRIN [Concomitant]
     Active Substance: IBUPROFEN
  23. ALEVE [Concomitant]
     Active Substance: NAPROXEN SODIUM
  24. MOBIC [Concomitant]
     Active Substance: MELOXICAM
  25. LISINOPRIL. [Concomitant]
     Active Substance: LISINOPRIL
  26. LEXAPRO [Concomitant]
     Active Substance: ESCITALOPRAM OXALATE
  27. TEQUIN [Concomitant]
     Active Substance: GATIFLOXACIN
  28. CENTRUM [Concomitant]
     Active Substance: VITAMINS
  29. CALTRATE +D [Concomitant]
  30. AUGMENTIN [Concomitant]
     Active Substance: AMOXICILLIN\CLAVULANATE POTASSIUM
  31. ACTONEL [Suspect]
     Active Substance: RISEDRONATE SODIUM
     Indication: PROPHYLAXIS
     Route: 048
     Dates: start: 200903, end: 201006
  32. ASPIRIN. [Concomitant]
     Active Substance: ASPIRIN
  33. MACRODANTIN [Concomitant]
     Active Substance: NITROFURANTOIN
  34. ZITHROMAX [Concomitant]
     Active Substance: AZITHROMYCIN DIHYDRATE
  35. IRON [Concomitant]
     Active Substance: IRON
  36. CIPRO [Concomitant]
     Active Substance: CIPROFLOXACIN HYDROCHLORIDE

REACTIONS (11)
  - Femoral neck fracture [None]
  - Bone disorder [None]
  - Pain [None]
  - Fall [None]
  - Pathological fracture [None]
  - Stress fracture [None]
  - Femur fracture [None]
  - Low turnover osteopathy [None]
  - Fracture displacement [None]
  - Impaired healing [None]
  - Pain in extremity [None]

NARRATIVE: CASE EVENT DATE: 200305
